FAERS Safety Report 7435170-4 (Version None)
Quarter: 2011Q2

REPORT INFORMATION
  Report Type: 
  Country: None (occurrence: None)
  Receive Date: 20110425
  Receipt Date: 20110421
  Transmission Date: 20111010
  Serious: Yes (Death, Other)
  Sender: FDA-Public Use
  Company Number: PHFR2011GB02040

PATIENT
  Sex: Male

DRUGS (7)
  1. ALBUTEROL SULFATE AUTOHALER [Concomitant]
  2. FLUOXETINE [Concomitant]
  3. DEXAMETHASONE [Concomitant]
  4. VALPROATE SODIUM [Concomitant]
  5. ORAMORPH SR [Concomitant]
  6. MST [Concomitant]
  7. CLOZARIL [Suspect]
     Indication: SCHIZOPHRENIA
     Dosage: 350 MG, UNK
     Route: 048
     Dates: start: 20090901

REACTIONS (7)
  - NEUTROPHIL COUNT INCREASED [None]
  - COUGH [None]
  - WHITE BLOOD CELL COUNT INCREASED [None]
  - LOWER RESPIRATORY TRACT INFECTION [None]
  - METASTASIS [None]
  - LUNG ADENOCARCINOMA [None]
  - CARDIOPULMONARY FAILURE [None]
